FAERS Safety Report 5486961-0 (Version None)
Quarter: 2007Q4

REPORT INFORMATION
  Report Type: 
  Country: None (occurrence: None)
  Receive Date: 20071012
  Receipt Date: 20071012
  Transmission Date: 20080405
  Serious: Yes (Other)
  Sender: FDA-Public Use
  Company Number: None

PATIENT
  Age: 56 Year
  Sex: Female
  Weight: 56.6996 kg

DRUGS (2)
  1. FORTEO [Suspect]
     Indication: OSTEOPENIA
     Dates: start: 20070714, end: 20071011
  2. FORTEO [Suspect]
     Indication: SURGERY
     Dates: start: 20070714, end: 20071011

REACTIONS (6)
  - BLOOD CHOLESTEROL INCREASED [None]
  - CLUMSINESS [None]
  - DYSAESTHESIA [None]
  - GRIP STRENGTH DECREASED [None]
  - NEUROPATHY PERIPHERAL [None]
  - PARAESTHESIA [None]
